FAERS Safety Report 10050716 (Version 1)
Quarter: 2014Q2

REPORT INFORMATION
  Report Type: Spontaneous
  Country: US (occurrence: US)
  Receive Date: 20140401
  Receipt Date: 20140401
  Transmission Date: 20141212
  Serious: No
  Sender: FDA-Public Use
  Company Number: US-ASTRAZENECA-2013SE72262

PATIENT
  Age: 73 Year
  Sex: Female
  Weight: 80.7 kg

DRUGS (14)
  1. NEXIUM [Suspect]
     Indication: GASTROOESOPHAGEAL REFLUX DISEASE
     Route: 048
     Dates: start: 2010, end: 20130913
  2. SYNTHROID [Concomitant]
     Indication: THYROID DISORDER
     Route: 048
     Dates: start: 1960
  3. LASARTON [Concomitant]
     Indication: BLOOD PRESSURE ABNORMAL
     Route: 048
     Dates: start: 2012
  4. PRAVASTATION [Concomitant]
     Indication: BLOOD CHOLESTEROL ABNORMAL
     Route: 048
     Dates: start: 201303
  5. AMOLODOPINE [Concomitant]
     Indication: BLOOD PRESSURE ABNORMAL
     Route: 048
     Dates: start: 2012
  6. CYMBALTA [Concomitant]
     Indication: FIBROMYALGIA
     Route: 048
     Dates: start: 2008
  7. GABAPENTIN [Concomitant]
     Indication: NEURALGIA
     Route: 048
  8. CELEBREX [Concomitant]
     Indication: PAIN
     Route: 048
     Dates: start: 2003
  9. ZANTAC [Concomitant]
     Indication: GASTROOESOPHAGEAL REFLUX DISEASE
     Route: 048
     Dates: start: 1998
  10. REGLAN [Concomitant]
     Indication: GASTRIC DISORDER
     Route: 048
     Dates: start: 1998
  11. CORAG [Concomitant]
     Indication: BLOOD PRESSURE ABNORMAL
     Route: 048
     Dates: start: 2008
  12. CLARITAN [Concomitant]
     Indication: HYPERSENSITIVITY
     Route: 048
     Dates: start: 2003
  13. FLONASE [Concomitant]
     Indication: HYPERSENSITIVITY
     Route: 048
     Dates: start: 2003
  14. XANAX [Concomitant]
     Indication: ANXIETY
     Route: 048
     Dates: start: 1993

REACTIONS (4)
  - Hiatus hernia [Unknown]
  - Colitis [Unknown]
  - Blood cholesterol increased [Unknown]
  - Drug dose omission [Unknown]
